FAERS Safety Report 10035923 (Version 1)
Quarter: 2014Q1

REPORT INFORMATION
  Report Type: Spontaneous
  Country: AU (occurrence: AU)
  Receive Date: 20140325
  Receipt Date: 20140325
  Transmission Date: 20141002
  Serious: Yes (Hospitalization)
  Sender: FDA-Public Use
  Company Number: AU-BRISTOL-MYERS SQUIBB COMPANY-20564985

PATIENT
  Age: 50 Year
  Sex: Female

DRUGS (1)
  1. YERVOY [Suspect]
     Dates: start: 20140214

REACTIONS (2)
  - Nausea [Unknown]
  - Vomiting [Unknown]
